FAERS Safety Report 5592322-6 (Version None)
Quarter: 2008Q1

REPORT INFORMATION
  Report Type: 
  Country: None (occurrence: None)
  Receive Date: 20080115
  Receipt Date: 20080104
  Transmission Date: 20080703
  Serious: Yes (Other)
  Sender: FDA-Public Use
  Company Number: DE-GENENTECH-254016

PATIENT
  Sex: Male
  Weight: 98 kg

DRUGS (4)
  1. AVASTIN [Suspect]
     Indication: COLON CANCER METASTATIC
     Dosage: 337.5 MG, UNK
     Route: 042
     Dates: start: 20070613
  2. FOLINIC ACID [Concomitant]
     Indication: COLON CANCER METASTATIC
     Dates: start: 20070613
  3. FLUOROURACIL [Concomitant]
     Indication: COLON CANCER METASTATIC
     Dates: start: 20070613
  4. IRINOTECAN [Concomitant]
     Indication: COLON CANCER METASTATIC
     Dates: start: 20070613

REACTIONS (1)
  - BONE DISORDER [None]
